FAERS Safety Report 13289088 (Version 2)
Quarter: 2017Q1

REPORT INFORMATION
  Report Type: Spontaneous
  Country: US (occurrence: US)
  Receive Date: 20170302
  Receipt Date: 20170310
  Transmission Date: 20170428
  Serious: Yes (Hospitalization)
  Sender: FDA-Public Use
  Company Number: US-DRREDDYS-USA/USA/17/0087572

PATIENT
  Age: 47 Year
  Sex: Female

DRUGS (1)
  1. IBUPROFEN. [Suspect]
     Active Substance: IBUPROFEN
     Indication: PRODUCT USED FOR UNKNOWN INDICATION
     Dosage: 4-5 TIMES/DAY
     Route: 065

REACTIONS (4)
  - Ecchymosis [Unknown]
  - Vitamin K deficiency [Unknown]
  - Unmasking of previously unidentified disease [Unknown]
  - Haematuria [Unknown]
